FAERS Safety Report 6976148-4 (Version None)
Quarter: 2010Q3

REPORT INFORMATION
  Report Type: 
  Country: None (occurrence: None)
  Receive Date: 20100910
  Receipt Date: 20100907
  Transmission Date: 20110219
  Serious: Yes (Death)
  Sender: FDA-Public Use
  Company Number: IT-ASTRAZENECA-2010SE41973

PATIENT
  Age: 23363 Day
  Sex: Male

DRUGS (2)
  1. NAROPINA [Suspect]
     Route: 058
     Dates: start: 20100906, end: 20100906
  2. ULTRAVIST 150 [Suspect]
     Indication: ARTERIAL CATHETERISATION
     Route: 013
     Dates: start: 20100906, end: 20100906

REACTIONS (1)
  - ANAPHYLACTOID REACTION [None]
